FAERS Safety Report 15995101 (Version 1)
Quarter: 2019Q1

REPORT INFORMATION
  Report Type: Report from Study
  Country: BR (occurrence: BR)
  Receive Date: 20190222
  Receipt Date: 20190222
  Transmission Date: 20190418
  Serious: Yes (Other)
  Sender: FDA-Public Use
  Company Number: PHHY2018BR041935

PATIENT
  Age: 51 Year
  Sex: Female
  Weight: 96 kg

DRUGS (4)
  1. DIOVAN [Suspect]
     Active Substance: VALSARTAN
     Indication: HYPERTENSION
     Dosage: 1 DF, QD (MORNING WITH GLASS OF MILK)
     Route: 048
     Dates: start: 20180220
  2. ATENOLOL. [Suspect]
     Active Substance: ATENOLOL
     Indication: BLOOD PRESSURE ABNORMAL
     Dosage: 1 DF, QD (WITH HALF A MUG OF MILK)
     Route: 048
     Dates: start: 20180704
  3. HIDRION [Suspect]
     Active Substance: FUROSEMIDE\POTASSIUM CHLORIDE
     Indication: HYPERTENSION
     Dosage: 1 DF, QD (IN THE MORNING DAY IN THE MORNING WITH HALF A GLASS OF MILK)
     Route: 048
     Dates: start: 20180220
  4. HYDROCHLOROTHIAZIDE. [Suspect]
     Active Substance: HYDROCHLOROTHIAZIDE
     Indication: PRODUCT USED FOR UNKNOWN INDICATION
     Route: 065

REACTIONS (8)
  - Diarrhoea [Recovering/Resolving]
  - Cold sweat [Recovering/Resolving]
  - Wrong technique in product usage process [Unknown]
  - Blood pressure decreased [Recovering/Resolving]
  - Syncope [Recovering/Resolving]
  - Dry mouth [Recovering/Resolving]
  - Malaise [Recovering/Resolving]
  - Blood pressure increased [Unknown]

NARRATIVE: CASE EVENT DATE: 20180704
